FAERS Safety Report 5114529-4 (Version None)
Quarter: 2006Q3

REPORT INFORMATION
  Report Type: 
  Country: None (occurrence: None)
  Receive Date: 20060926
  Receipt Date: 20060731
  Transmission Date: 20061208
  Serious: Yes (Other)
  Sender: FDA-Public Use
  Company Number: PHHO2006FR12220

PATIENT
  Age: 39 Year
  Sex: Female

DRUGS (3)
  1. DESFERAL [Suspect]
     Indication: HAEMOSIDEROSIS
     Dosage: 1250 MG, QD
     Route: 048
     Dates: start: 20040731
  2. DIDRONEL [Concomitant]
     Indication: OSTEOPOROSIS
  3. CLIMASTON [Concomitant]
     Indication: HYPOGONADISM FEMALE

REACTIONS (2)
  - AUTOIMMUNE DISORDER [None]
  - RHEUMATOID ARTHRITIS [None]
